FAERS Safety Report 8058972-2 (Version None)
Quarter: 2012Q1

REPORT INFORMATION
  Report Type: 
  Country: None (occurrence: None)
  Receive Date: 20120112
  Receipt Date: 20111228
  Transmission Date: 20120608
  Serious: Yes (Hospitalization, Other)
  Sender: FDA-Public Use
  Company Number: 2011MA018098

PATIENT
  Age: 10 Month
  Sex: Female

DRUGS (9)
  1. DIAZEPAM [Suspect]
     Indication: CONVULSION
     Dosage: IV
     Route: 042
  2. PHENOBARBITAL TAB [Suspect]
     Indication: FEBRILE CONVULSION
     Dosage: 5 MG/KG/DAY
  3. VIGABATRIN (VIGABATRIN) [Suspect]
     Indication: INFANTILE SPASMS
     Dosage: 40 MG/KG/DAY
  4. CARBAMAZEPINE [Suspect]
     Indication: CONVULSION
     Dosage: 10 MG/KG/DAY
  5. LEVETIRACETAM [Suspect]
     Indication: CONVULSION
     Dosage: 10 MG/KG/DAY
  6. TOPIRAMATE [Suspect]
     Indication: CONVULSION
  7. ACYCLOVIR [Suspect]
     Indication: CONVULSION
     Dosage: 500 MG/M2; Q8H
  8. CEFTRIAXONE [Suspect]
     Indication: FEBRILE CONVULSION
  9. PHENYTOIN SODIUM [Suspect]
     Indication: FEBRILE CONVULSION
     Dosage: 4 MG/KG/DAY

REACTIONS (7)
  - NO THERAPEUTIC RESPONSE [None]
  - CONVULSION [None]
  - DEPRESSED LEVEL OF CONSCIOUSNESS [None]
  - INFANTILE SPASMS [None]
  - PYREXIA [None]
  - ENCEPHALITIS HERPES [None]
  - PARTIAL SEIZURES [None]
